FAERS Safety Report 9119513 (Version 1)
Quarter: 2013Q1

REPORT INFORMATION
  Report Type: Spontaneous
  Country: US (occurrence: None)
  Receive Date: 20130221
  Receipt Date: 20130221
  Transmission Date: 20140127
  Serious: No
  Sender: FDA-Public Use
  Company Number: None

PATIENT
  Sex: 0

DRUGS (2)
  1. HYDROMORPHONE HCL HYDROMORPHONE [Suspect]
     Dosage: WEST-WARD PHARMACEUTICAL CORPORATION INJECTABLE INJECTION 2 MG/ML VIAL 1 ML
     Route: 042
  2. MORPHINE SULFATE INJECTION MORPHINE SULFATE [Suspect]
     Dosage: WEST-WARD PHARMACEUTICAL CORPORATION INJECTABLE INJECTION 5 MG/ML VIAL 1 ML 0641-6073-01
     Route: 042

REACTIONS (2)
  - Medication error [None]
  - Circumstance or information capable of leading to medication error [None]
